FAERS Safety Report 15538825 (Version 1)
Quarter: 2018Q4

REPORT INFORMATION
  Report Type: Spontaneous
  Country: CN (occurrence: CN)
  Receive Date: 20181022
  Receipt Date: 20181022
  Transmission Date: 20190205
  Serious: Yes (Hospitalization)
  Sender: FDA-Public Use
  Company Number: CN-GLAXOSMITHKLINE-CN2018GSK189313

PATIENT
  Age: 41 Year
  Sex: Male
  Weight: 62 kg

DRUGS (1)
  1. BACTROBAN [Suspect]
     Active Substance: MUPIROCIN\MUPIROCIN CALCIUM
     Indication: SKIN ABRASION
     Dosage: 10 G, TID
     Route: 061
     Dates: start: 20180801, end: 20180801

REACTIONS (6)
  - Blister [Recovered/Resolved]
  - Wound complication [Recovered/Resolved]
  - Pruritus [Recovered/Resolved]
  - Administration site erythema [Recovered/Resolved]
  - Wound secretion [Recovered/Resolved]
  - Hypersensitivity [Recovered/Resolved]

NARRATIVE: CASE EVENT DATE: 20180801
